FAERS Safety Report 7302800-7 (Version None)
Quarter: 2011Q1

REPORT INFORMATION
  Report Type: 
  Country: None (occurrence: None)
  Receive Date: 20110218
  Receipt Date: 20101027
  Transmission Date: 20110831
  Serious: No
  Sender: FDA-Public Use
  Company Number: US-BAYER-201023153BCC

PATIENT
  Sex: Female
  Weight: 68.182 kg

DRUGS (6)
  1. HYDROCHLOROTHIAZIDE [Concomitant]
  2. CHEMOTHERAPEUTICS NOS [Concomitant]
  3. DEXAMETHASONE [Concomitant]
  4. LISINOPRIL [Concomitant]
  5. ALEVE [Suspect]
     Indication: ANALGESIC THERAPY
     Route: 048
  6. SYNTHROID [Concomitant]

REACTIONS (2)
  - SWELLING FACE [None]
  - TOOTHACHE [None]
